FAERS Safety Report 21112149 (Version 1)
Quarter: 2022Q3

REPORT INFORMATION
  Report Type: Spontaneous
  Country: US (occurrence: None)
  Receive Date: 20220721
  Receipt Date: 20220721
  Transmission Date: 20221027
  Serious: Yes (Other)
  Sender: FDA-Public Use
  Company Number: None

PATIENT
  Age: 38 Year
  Sex: Female
  Weight: 72 kg

DRUGS (1)
  1. SUBUTEX [Suspect]
     Active Substance: BUPRENORPHINE HYDROCHLORIDE
     Indication: Drug use disorder
     Route: 060

REACTIONS (5)
  - Dental caries [None]
  - Tooth infection [None]
  - Nerve injury [None]
  - Pain [None]
  - Gingival disorder [None]

NARRATIVE: CASE EVENT DATE: 20200505
